FAERS Safety Report 7943231-6 (Version None)
Quarter: 2011Q4

REPORT INFORMATION
  Report Type: 
  Country: None (occurrence: None)
  Receive Date: 20111128
  Receipt Date: 20111121
  Transmission Date: 20120403
  Serious: Yes (Hospitalization)
  Sender: FDA-Public Use
  Company Number: PHEH2011US06895

PATIENT
  Sex: Male
  Weight: 63.492 kg

DRUGS (10)
  1. OMEPRAZOLE [Concomitant]
  2. SALINE [Concomitant]
     Indication: CYSTIC FIBROSIS
     Dosage: 1 DF, BID
  3. ADVAIR DISKUS 100/50 [Concomitant]
     Indication: CYSTIC FIBROSIS
  4. PULMOZYME [Concomitant]
     Indication: CYSTIC FIBROSIS
     Dosage: 1 DF, QD
  5. AZITHROMYCIN [Concomitant]
     Indication: CYSTIC FIBROSIS
     Dosage: 500 MG, QMWF
     Route: 048
  6. CREON [Concomitant]
  7. ALBUTEROL [Concomitant]
     Indication: CYSTIC FIBROSIS
  8. FLONASE [Concomitant]
  9. TOBI [Suspect]
     Indication: BACTERIAL DISEASE CARRIER
     Dosage: 300 MG, TWICE DAILY VIA NEBULIZER IN A CYCLE OF 28 DAYS ON AND 28 DAYS OFF
     Dates: start: 20110408
  10. CLARITIN [Concomitant]

REACTIONS (4)
  - CHRONIC SINUSITIS [None]
  - COUGH [None]
  - LUNG INFECTION [None]
  - NASAL CONGESTION [None]
